FAERS Safety Report 9211551 (Version 2)
Quarter: 2013Q2

REPORT INFORMATION
  Report Type: Spontaneous
  Country: US (occurrence: US)
  Receive Date: 20130404
  Receipt Date: 20130506
  Transmission Date: 20140414
  Serious: No
  Sender: FDA-Public Use
  Company Number: US-AMGEN-USASP2013017425

PATIENT
  Age: 54 Year
  Sex: Male
  Weight: 99.77 kg

DRUGS (5)
  1. ENBREL [Suspect]
     Indication: RHEUMATOID ARTHRITIS
     Dosage: 50 MG, QWK
     Route: 058
     Dates: start: 20110606
  2. VITAMIN B12                        /00056201/ [Concomitant]
     Indication: VITAMIN B12 DECREASED
     Dosage: 1000 MG, QMO
     Dates: start: 20110606
  3. THIAMINE [Concomitant]
     Indication: VITAMIN B1 DECREASED
     Dosage: 1000 MG, QD
     Dates: start: 20111123
  4. FOLBIC [Concomitant]
     Indication: BLOOD FOLATE DECREASED
     Dosage: UNK,1 PILL DAILY
     Route: 048
     Dates: start: 2010
  5. COUMADIN                           /00014802/ [Concomitant]
     Dosage: UNK
     Dates: start: 2010

REACTIONS (8)
  - Tooth fracture [Recovered/Resolved]
  - Back pain [Not Recovered/Not Resolved]
  - Arthralgia [Not Recovered/Not Resolved]
  - Pain in extremity [Not Recovered/Not Resolved]
  - Drug effect incomplete [Recovered/Resolved]
  - Lower respiratory tract infection bacterial [Recovered/Resolved]
  - Tooth abscess [Recovered/Resolved]
  - Upper respiratory tract infection [Recovered/Resolved]
